FAERS Safety Report 8385806-9 (Version None)
Quarter: 2012Q2

REPORT INFORMATION
  Report Type: 
  Country: None (occurrence: None)
  Receive Date: 20120523
  Receipt Date: 20120523
  Transmission Date: 20120825
  Serious: Yes (Other)
  Sender: FDA-Public Use
  Company Number: None

PATIENT
  Sex: Female
  Weight: 72.3 kg

DRUGS (1)
  1. ESCITALOPRAM [Suspect]
     Indication: DEPRESSION
     Dosage: ESCITALOPRAM 20MG ONCE DAILY ORAL
     Route: 048

REACTIONS (5)
  - CONDITION AGGRAVATED [None]
  - SUICIDAL IDEATION [None]
  - DEPRESSION [None]
  - PRODUCT SUBSTITUTION ISSUE [None]
  - EDUCATIONAL PROBLEM [None]
